FAERS Safety Report 9626958 (Version 1)
Quarter: 2013Q4

REPORT INFORMATION
  Report Type: Report from Study
  Country: US (occurrence: US)
  Receive Date: 20131016
  Receipt Date: 20131016
  Transmission Date: 20140711
  Serious: Yes (Hospitalization, Other)
  Sender: FDA-Public Use
  Company Number: US-PURDUE-USA-2013-0107544

PATIENT
  Age: 68 Year
  Sex: Female

DRUGS (14)
  1. DILAUDID TABLET [Suspect]
     Indication: BACK PAIN
     Dosage: 2 MG, PRN
     Route: 048
     Dates: start: 20130628, end: 20130716
  2. DACOMITINIB [Suspect]
     Indication: NON-SMALL CELL LUNG CANCER
     Dosage: 45 MG, DAILY
     Dates: start: 20130628, end: 20130709
  3. DOXYCYCLINE [Suspect]
     Indication: NON-SMALL CELL LUNG CANCER
     Dosage: 100 MG, BID
     Route: 048
     Dates: start: 20130628, end: 20130709
  4. FERROUS SULFATE [Concomitant]
     Indication: ANAEMIA
     Dosage: UNK
     Dates: start: 20130124
  5. LORAZEPAM [Concomitant]
     Indication: INSOMNIA
     Dosage: UNK
     Dates: start: 2011
  6. LOSARTAN [Concomitant]
     Indication: HYPERTENSION
     Dosage: UNK
     Dates: start: 201301
  7. PRO-AIR [Concomitant]
     Indication: PRODUCT USED FOR UNKNOWN INDICATION
  8. VITAMIN C                          /00008001/ [Concomitant]
     Indication: PRODUCT USED FOR UNKNOWN INDICATION
     Dosage: UNK
     Dates: start: 20130124
  9. WARFARIN [Concomitant]
     Indication: PRODUCT USED FOR UNKNOWN INDICATION
     Dosage: UNK
     Dates: start: 20130124
  10. ZOFRAN                             /00955301/ [Concomitant]
     Indication: NAUSEA
     Dosage: UNK
     Dates: start: 201212
  11. ZOFRAN                             /00955301/ [Concomitant]
     Indication: VOMITING
     Dosage: UNK
     Dates: start: 20130713
  12. CETAPHIL                           /02314901/ [Concomitant]
     Indication: DRY SKIN
     Dosage: UNK
     Dates: start: 2012
  13. IBUPROFEN [Concomitant]
  14. EMILA CREAM [Concomitant]
     Indication: PRODUCT USED FOR UNKNOWN INDICATION

REACTIONS (4)
  - Thoracic vertebral fracture [Unknown]
  - Back pain [Not Recovered/Not Resolved]
  - Vomiting [Recovered/Resolved]
  - Nausea [Recovered/Resolved]
